FAERS Safety Report 18349621 (Version 6)
Quarter: 2025Q2

REPORT INFORMATION
  Report Type: Spontaneous
  Country: US (occurrence: US)
  Receive Date: 20201006
  Receipt Date: 20250630
  Transmission Date: 20250716
  Serious: No
  Sender: VERTEX
  Company Number: US-VERTEX PHARMACEUTICALS-2020-019471

PATIENT
  Age: 26 Year
  Sex: Female
  Weight: 53 kg

DRUGS (13)
  1. TRIKAFTA [Suspect]
     Active Substance: ELEXACAFTOR\IVACAFTOR\TEZACAFTOR
     Indication: Cystic fibrosis
     Dosage: 2 ORANGE TABS AM AND 1 BLUE TAB PM
     Route: 048
     Dates: start: 20200220, end: 20220911
  2. TRIKAFTA [Suspect]
     Active Substance: ELEXACAFTOR\IVACAFTOR\TEZACAFTOR
     Route: 048
     Dates: start: 20230824
  3. CAYSTON [Concomitant]
     Active Substance: AZTREONAM
  4. PULMOZYME [Concomitant]
     Active Substance: DORNASE ALFA
  5. TOBRAMYCIN [Concomitant]
     Active Substance: TOBRAMYCIN
  6. AZITHROMYCIN [Concomitant]
     Active Substance: AZITHROMYCIN
  7. VENTOLIN HFA [Concomitant]
     Active Substance: ALBUTEROL SULFATE
  8. CREON [Concomitant]
     Active Substance: PANCRELIPASE AMYLASE\PANCRELIPASE LIPASE\PANCRELIPASE PROTEASE
  9. LANTUS [Concomitant]
     Active Substance: INSULIN GLARGINE
  10. HUMALOG [Concomitant]
     Active Substance: INSULIN LISPRO
  11. IBUPROFEN [Concomitant]
     Active Substance: IBUPROFEN
  12. PREDNISONE [Concomitant]
     Active Substance: PREDNISONE
  13. EXCEDRIN [Concomitant]
     Active Substance: ACETAMINOPHEN\ASPIRIN\CAFFEINE

REACTIONS (12)
  - Acne cystic [Not Recovered/Not Resolved]
  - Emotional disorder [Not Recovered/Not Resolved]
  - Post-traumatic stress disorder [Not Recovered/Not Resolved]
  - Mental disorder [Not Recovered/Not Resolved]
  - Bacterial infection [Unknown]
  - Pruritus [Not Recovered/Not Resolved]
  - Self-consciousness [Unknown]
  - Pain [Not Recovered/Not Resolved]
  - Swelling face [Not Recovered/Not Resolved]
  - Dysphonia [Recovering/Resolving]
  - Headache [Unknown]
  - Nasal congestion [Unknown]

NARRATIVE: CASE EVENT DATE: 20200201
